FAERS Safety Report 22344346 (Version 1)
Quarter: 2023Q2

REPORT INFORMATION
  Report Type: Spontaneous
  Country: IT (occurrence: IT)
  Receive Date: 20230519
  Receipt Date: 20230519
  Transmission Date: 20230722
  Serious: Yes (Other)
  Sender: FDA-Public Use
  Company Number: None

PATIENT
  Age: 49 Year
  Sex: Female
  Weight: 73 kg

DRUGS (2)
  1. KESIMPTA [Suspect]
     Active Substance: OFATUMUMAB
     Indication: Multiple sclerosis
     Dosage: 1 DOSAGE FORM, QMO, (1/MESE FL SOTTOCUTANEO)
     Route: 058
     Dates: start: 202211, end: 20230327
  2. BROMAZEPAM [Concomitant]
     Active Substance: BROMAZEPAM
     Indication: Muscle relaxant therapy
     Dosage: UNK
     Route: 048
     Dates: start: 2020

REACTIONS (6)
  - Oral mucosal erythema [Recovered/Resolved]
  - Dysphagia [Recovered/Resolved]
  - Swollen tongue [Recovered/Resolved]
  - Oral discomfort [Recovered/Resolved]
  - Tongue erythema [Recovered/Resolved]
  - Lip swelling [Recovered/Resolved]

NARRATIVE: CASE EVENT DATE: 20230327
